FAERS Safety Report 4293797-5 (Version None)
Quarter: 2004Q1

REPORT INFORMATION
  Report Type: 
  Country: None (occurrence: None)
  Receive Date: 20040210
  Receipt Date: 20040128
  Transmission Date: 20041129
  Serious: Yes (Other)
  Sender: FDA-Public Use
  Company Number: 2004006067

PATIENT
  Age: 23 Year
  Sex: Male

DRUGS (1)
  1. THROMBIN [Suspect]
     Indication: HAEMORRHAGE
     Dosage: 5000 UNITS (DAILY), INTROCULAR
     Route: 031

REACTIONS (2)
  - RETINAL OEDEMA [None]
  - RETINAL VASCULAR DISORDER [None]
